FAERS Safety Report 6385978-1 (Version None)
Quarter: 2009Q4

REPORT INFORMATION
  Report Type: 
  Country: None (occurrence: None)
  Receive Date: 20091002
  Receipt Date: 20090108
  Transmission Date: 20100525
  Serious: No
  Sender: FDA-Public Use
  Company Number: US-ASTRAZENECA-2009UW00710

PATIENT
  Age: 64 Year
  Sex: Female
  Weight: 74.8 kg

DRUGS (6)
  1. ARIMIDEX [Suspect]
     Indication: BREAST CANCER
     Route: 048
     Dates: start: 20080401
  2. LOPRESSOR [Concomitant]
  3. PRILOSEC [Concomitant]
  4. WELCHOL [Concomitant]
  5. CALCIUM [Concomitant]
  6. METAMUCIL [Concomitant]

REACTIONS (1)
  - MIGRAINE [None]
